FAERS Safety Report 18014402 (Version 1)
Quarter: 2020Q3

REPORT INFORMATION
  Report Type: Spontaneous
  Country: US (occurrence: US)
  Receive Date: 20200713
  Receipt Date: 20200713
  Transmission Date: 20201103
  Serious: No
  Sender: FDA-Public Use
  Company Number: None

PATIENT

DRUGS (1)
  1. TOCILIZUMAB. [Suspect]
     Active Substance: TOCILIZUMAB

REACTIONS (7)
  - Contraindicated product administered [None]
  - White blood cell count increased [None]
  - Product use issue [None]
  - Haemodynamic instability [None]
  - Clostridium difficile infection [None]
  - Superinfection [None]
  - Staphylococcus test positive [None]
